FAERS Safety Report 15288422 (Version 1)
Quarter: 2018Q3

REPORT INFORMATION
  Report Type: Report from Study
  Country: US (occurrence: US)
  Receive Date: 20180817
  Receipt Date: 20180817
  Transmission Date: 20181010
  Serious: Yes (Other)
  Sender: FDA-Public Use
  Company Number: US-ROCHE-2170648

PATIENT
  Sex: Male
  Weight: 58.7 kg

DRUGS (1)
  1. VALCYTE [Suspect]
     Active Substance: VALGANCICLOVIR HYDROCHLORIDE
     Indication: RENAL TRANSPLANT
     Dosage: PER REORDER ON FILE DATED 2?9?18
     Route: 048
     Dates: start: 20180104, end: 20180704

REACTIONS (3)
  - Influenza like illness [Unknown]
  - Pain [Not Recovered/Not Resolved]
  - Cytomegalovirus infection [Unknown]
